FAERS Safety Report 4719661-2 (Version None)
Quarter: 2005Q3

REPORT INFORMATION
  Report Type: 
  Country: None (occurrence: None)
  Receive Date: 20050721
  Receipt Date: 20040608
  Transmission Date: 20060218
  Serious: No
  Sender: FDA-Public Use
  Company Number: US-GLAXOSMITHKLINE-A0513797A

PATIENT
  Age: 82 Year
  Sex: Female

DRUGS (4)
  1. AVANDIA [Suspect]
     Dosage: 4MG PER DAY
     Route: 048
  2. ZETIA [Concomitant]
  3. FOSAMAX [Concomitant]
  4. CALCIUM SUPPLEMENTS [Concomitant]

REACTIONS (1)
  - WEIGHT DECREASED [None]
